FAERS Safety Report 5302460-0 (Version None)
Quarter: 2007Q2

REPORT INFORMATION
  Report Type: 
  Country: None (occurrence: None)
  Receive Date: 20070412
  Receipt Date: 20070330
  Transmission Date: 20071010
  Serious: Yes (Other)
  Sender: FDA-Public Use
  Company Number: CERZ-11595

PATIENT
  Age: 3 Year
  Sex: Male
  Weight: 8 kg

DRUGS (3)
  1. CEREZYME [Suspect]
     Indication: GAUCHER'S DISEASE
     Dosage: 600 UNITS Q2WKS IV
     Route: 042
     Dates: start: 20041102
  2. CEREZYME [Suspect]
  3. CEREZYME [Suspect]

REACTIONS (1)
  - PNEUMONIA ASPIRATION [None]
